FAERS Safety Report 5730621-5 (Version None)
Quarter: 2008Q2

REPORT INFORMATION
  Report Type: 
  Country: None (occurrence: None)
  Receive Date: 20080507
  Receipt Date: 20080506
  Transmission Date: 20081010
  Serious: Yes (Death, Other)
  Sender: FDA-Public Use
  Company Number: SE-WYE-H03715008

PATIENT
  Age: 21 Year
  Sex: Female

DRUGS (1)
  1. EFFEXOR [Suspect]
     Dosage: ^MOST PROBABLY^ 14.7 G
     Route: 048

REACTIONS (13)
  - CARDIAC ARREST [None]
  - CARDIOTOXICITY [None]
  - COMA [None]
  - CONVULSION [None]
  - ELECTROCARDIOGRAM QRS COMPLEX PROLONGED [None]
  - ELECTROCARDIOGRAM QT PROLONGED [None]
  - HYPERTONIA [None]
  - HYPOTENSION [None]
  - MYDRIASIS [None]
  - OVERDOSE [None]
  - PYREXIA [None]
  - TACHYCARDIA [None]
  - VENTRICULAR TACHYCARDIA [None]
